FAERS Safety Report 8222204-2 (Version None)
Quarter: 2012Q1

REPORT INFORMATION
  Report Type: 
  Country: None (occurrence: None)
  Receive Date: 20120320
  Receipt Date: 20120307
  Transmission Date: 20120608
  Serious: Yes (Hospitalization)
  Sender: FDA-Public Use
  Company Number: JP-ACTELION-A-CH2010-42802

PATIENT
  Age: 79 Year
  Sex: Female

DRUGS (4)
  1. OXYGEN [Concomitant]
  2. BERAPROST [Concomitant]
  3. TRACLEER [Suspect]
     Indication: PULMONARY HYPERTENSION
     Dosage: 62.5 MG, BID
     Route: 048
     Dates: start: 20090313
  4. SILDENAFIL CITRATE [Concomitant]
     Dosage: UNK
     Dates: start: 20090701

REACTIONS (5)
  - PULMONARY HYPERTENSION [None]
  - RESPIRATORY DISORDER [None]
  - DYSPNOEA [None]
  - DISEASE PROGRESSION [None]
  - CONCOMITANT DISEASE AGGRAVATED [None]
